FAERS Safety Report 12749581 (Version 2)
Quarter: 2017Q3

REPORT INFORMATION
  Report Type: Spontaneous
  Country: US (occurrence: US)
  Receive Date: 20160915
  Receipt Date: 20170914
  Transmission Date: 20171127
  Serious: No
  Sender: FDA-Public Use
  Company Number: US-ASTELLAS-2016US016425

PATIENT
  Sex: Male

DRUGS (1)
  1. XTANDI [Suspect]
     Active Substance: ENZALUTAMIDE
     Indication: PROSTATE CANCER
     Route: 048
     Dates: start: 20160402

REACTIONS (8)
  - Decreased appetite [Unknown]
  - Vomiting [Unknown]
  - Hot flush [Unknown]
  - Hyperhidrosis [Unknown]
  - Drug dose omission [Unknown]
  - Weight decreased [Unknown]
  - Fall [Unknown]
  - Hallucination [Unknown]
